FAERS Safety Report 7364533-0 (Version None)
Quarter: 2011Q1

REPORT INFORMATION
  Report Type: 
  Country: None (occurrence: None)
  Receive Date: 20110321
  Receipt Date: 20110315
  Transmission Date: 20110831
  Serious: Yes (Hospitalization, Disabling, Other)
  Sender: FDA-Public Use
  Company Number: US-MERCK-1010USA01774

PATIENT
  Age: 65 Year
  Sex: Female
  Weight: 80 kg

DRUGS (13)
  1. FOSAMAX [Suspect]
     Indication: OSTEOPENIA
     Route: 048
     Dates: start: 19961106, end: 20010901
  2. VITAMINS (UNSPECIFIED) [Concomitant]
     Dosage: ^1 MULTIVITAMIN DAILY^
     Route: 048
     Dates: start: 19680101
  3. FOSAMAX PLUS D [Suspect]
     Route: 048
     Dates: start: 20010629
  4. FOSAMAX PLUS D [Suspect]
     Route: 048
     Dates: start: 20010629
  5. CALCIUM (UNSPECIFIED) [Concomitant]
     Route: 048
     Dates: start: 19960101
  6. ALENDRONATE SODIUM [Suspect]
     Indication: OSTEOPOROSIS
     Route: 048
     Dates: start: 20080428, end: 20100301
  7. ESTROGENS (UNSPECIFIED) [Concomitant]
     Indication: HORMONE REPLACEMENT THERAPY
     Route: 048
     Dates: start: 19900101
  8. FOSAMAX [Suspect]
     Route: 048
     Dates: start: 20010629, end: 20060614
  9. FOSAMAX PLUS D [Suspect]
     Indication: OSTEOPOROSIS
     Route: 048
     Dates: start: 20060309, end: 20080401
  10. FOSAMAX [Suspect]
     Route: 048
     Dates: start: 20010629, end: 20060614
  11. FOSAMAX [Suspect]
     Indication: OSTEOPOROSIS
     Route: 048
     Dates: start: 19961106, end: 20010901
  12. FOSAMAX PLUS D [Suspect]
     Indication: OSTEOPENIA
     Route: 048
     Dates: start: 20060309, end: 20080401
  13. VITAMIN D (UNSPECIFIED) [Concomitant]
     Route: 048
     Dates: start: 19960101

REACTIONS (57)
  - UTERINE DISORDER [None]
  - BRONCHITIS [None]
  - CATARACT [None]
  - WEIGHT DECREASED [None]
  - SINUS DISORDER [None]
  - INCREASED TENDENCY TO BRUISE [None]
  - HYPOTHYROIDISM [None]
  - ASTHMA [None]
  - STRESS FRACTURE [None]
  - HAND FRACTURE [None]
  - DYSPEPSIA [None]
  - UPPER RESPIRATORY TRACT INFECTION [None]
  - SYNCOPE [None]
  - PALATAL OEDEMA [None]
  - GOITRE [None]
  - OROPHARYNGEAL PAIN [None]
  - HYPERLIPIDAEMIA [None]
  - HEADACHE [None]
  - HAEMORRHOIDS [None]
  - OSTEOPOROSIS [None]
  - BACK DISORDER [None]
  - CONSTIPATION [None]
  - INTERVERTEBRAL DISC DEGENERATION [None]
  - DRUG ABUSE [None]
  - THYROID NEOPLASM [None]
  - WEIGHT INCREASED [None]
  - LOW TURNOVER OSTEOPATHY [None]
  - ARTERIOSCLEROSIS CORONARY ARTERY [None]
  - CORONARY ARTERY DISEASE [None]
  - OSTEOARTHRITIS [None]
  - DIZZINESS [None]
  - GASTROENTERITIS [None]
  - FALL [None]
  - PARAESTHESIA [None]
  - PNEUMONIA [None]
  - MUSCULOSKELETAL PAIN [None]
  - MASS [None]
  - TINNITUS [None]
  - JOINT DISLOCATION [None]
  - BASAL CELL CARCINOMA [None]
  - OVERDOSE [None]
  - CONTUSION [None]
  - COUGH [None]
  - THYROID CYST [None]
  - IRON DEFICIENCY ANAEMIA [None]
  - FRACTURE DELAYED UNION [None]
  - APPENDIX DISORDER [None]
  - HAEMORRHAGIC ANAEMIA [None]
  - VITAMIN D DEFICIENCY [None]
  - VENTRICULAR ARRHYTHMIA [None]
  - REFLUX OESOPHAGITIS [None]
  - HYPONATRAEMIA [None]
  - FEMUR FRACTURE [None]
  - HIP FRACTURE [None]
  - GAIT DISTURBANCE [None]
  - CARPAL TUNNEL SYNDROME [None]
  - SINUS CONGESTION [None]
